FAERS Safety Report 9925290 (Version 1)
Quarter: 2014Q1

REPORT INFORMATION
  Report Type: Spontaneous
  Country: US (occurrence: None)
  Receive Date: 20140225
  Receipt Date: 20140225
  Transmission Date: 20141002
  Serious: Yes (Other)
  Sender: FDA-Public Use
  Company Number: None

PATIENT
  Sex: Female

DRUGS (2)
  1. REMICADE [Suspect]
     Dosage: EVERY 6 WEEKS
     Route: 042
     Dates: start: 201301, end: 201308
  2. METHOTREXATE [Suspect]
     Indication: RHEUMATOID ARTHRITIS
     Route: 048
     Dates: start: 201204, end: 201308

REACTIONS (1)
  - Pneumonia cryptococcal [None]
